FAERS Safety Report 10243477 (Version 1)
Quarter: 2014Q2

REPORT INFORMATION
  Report Type: Spontaneous
  Country: US (occurrence: None)
  Receive Date: 20140616
  Receipt Date: 20140616
  Transmission Date: 20141212
  Serious: Yes (Disabling)
  Sender: FDA-Public Use
  Company Number: None

PATIENT
  Age: 69 Year
  Sex: Male
  Weight: 86.18 kg

DRUGS (1)
  1. LIPITOR [Suspect]
     Indication: BLOOD CHOLESTEROL
     Dosage: ONE PILL ONCE DAILY TAKEN BY MOUTH FOR A FEW YEARS??
     Route: 048

REACTIONS (6)
  - Type 2 diabetes mellitus [None]
  - Diabetic neuropathy [None]
  - Diabetes mellitus inadequate control [None]
  - Crying [None]
  - Burning sensation [None]
  - Visual impairment [None]
